FAERS Safety Report 9672005 (Version 1)
Quarter: 2013Q4

REPORT INFORMATION
  Report Type: Spontaneous
  Country: US (occurrence: US)
  Receive Date: 20131106
  Receipt Date: 20131106
  Transmission Date: 20140711
  Serious: Yes (Hospitalization)
  Sender: FDA-Public Use
  Company Number: US-GLAXOSMITHKLINE-A1047746A

PATIENT
  Age: 75 Year
  Sex: Female

DRUGS (9)
  1. ADVAIR [Suspect]
     Indication: CHRONIC OBSTRUCTIVE PULMONARY DISEASE
     Dosage: 1PUFF TWICE PER DAY
     Route: 055
     Dates: start: 201206, end: 201310
  2. PROAIR HFA [Concomitant]
     Route: 055
  3. ATORVASTATIN [Concomitant]
  4. BENAZEPRIL [Concomitant]
  5. CETIRIZINE [Concomitant]
  6. TOPROL [Concomitant]
  7. BENZONATATE [Concomitant]
  8. FISH OIL [Concomitant]
  9. VITAMIN D [Concomitant]

REACTIONS (7)
  - Oropharyngeal pain [Recovered/Resolved]
  - Dysphonia [Recovered/Resolved]
  - Aphonia [Recovered/Resolved]
  - Dyspnoea [Recovered/Resolved]
  - Cough [Unknown]
  - Drug administration error [Unknown]
  - Feeling abnormal [Recovered/Resolved]
